FAERS Safety Report 11246274 (Version 1)
Quarter: 2015Q3

REPORT INFORMATION
  Report Type: Spontaneous
  Country: JP (occurrence: JP)
  Receive Date: 20150708
  Receipt Date: 20150708
  Transmission Date: 20151125
  Serious: Yes (Other)
  Sender: FDA-Public Use
  Company Number: JP-ACCORD-031835

PATIENT
  Age: 72 Year
  Sex: Male

DRUGS (4)
  1. OXALIPLATIN. [Suspect]
     Active Substance: OXALIPLATIN
     Indication: PANCREATIC CARCINOMA
     Dosage: FOLFIRINOX.?STARTED 1ST COURSE WITH 85MG/M2.?THEN DOSE REDUCED TO 65MG/M2 IN 2ND COURSE.
  2. IRINOTECAN [Suspect]
     Active Substance: IRINOTECAN
     Indication: PANCREATIC CARCINOMA
     Dosage: FOLFIRINOX.?STARTED 1ST COURSE AT 180MG/M2.?THEN DOSE REDUCED TO 150MG/M2 IN 2ND COURSE.
  3. FLUOROURACIL. [Suspect]
     Active Substance: FLUOROURACIL
     Indication: PANCREATIC CARCINOMA
     Dosage: FOLFIRINOX.?STARTED 400MG/M2 BOLUS AND 2400MG/M2 CONTINUOUS INFUSION IN 1ST COURSE.
  4. LEVOFOLINATE [Suspect]
     Active Substance: LEVOLEUCOVORIN CALCIUM
     Indication: PANCREATIC CARCINOMA
     Dosage: FOLFIRINOX.?STARTED 1ST COURSE AT 200 MG/M2.?4TH COURSE: 200 MG/M2

REACTIONS (6)
  - Blindness [Unknown]
  - Neutropenia [Unknown]
  - Feeling abnormal [Unknown]
  - Diarrhoea [Unknown]
  - Stomatitis [Unknown]
  - Ageusia [Unknown]
